FAERS Safety Report 4508233-0 (Version None)
Quarter: 2004Q4

REPORT INFORMATION
  Report Type: 
  Country: None (occurrence: None)
  Receive Date: 20041123
  Receipt Date: 20031120
  Transmission Date: 20050328
  Serious: Yes (Disabling)
  Sender: FDA-Public Use
  Company Number: US-GLAXOSMITHKLINE-A0440825A

PATIENT
  Age: 48 Year
  Sex: Female
  Weight: 109.1 kg

DRUGS (6)
  1. WELLBUTRIN [Suspect]
     Indication: DEPRESSION
     Dosage: 150MG TWICE PER DAY
     Dates: start: 20030929, end: 20031103
  2. WELLBUTRIN [Suspect]
     Dosage: 150MG PER DAY
  3. LITHIUM [Concomitant]
     Route: 048
  4. ABILIFY [Concomitant]
  5. TRAZODONE HCL [Concomitant]
  6. LISINOPRIL [Concomitant]

REACTIONS (3)
  - ASTHENIA [None]
  - DIZZINESS [None]
  - TREMOR [None]
